FAERS Safety Report 8512882-2 (Version None)
Quarter: 2012Q3

REPORT INFORMATION
  Report Type: 
  Country: None (occurrence: None)
  Receive Date: 20120716
  Receipt Date: 20120704
  Transmission Date: 20120928
  Serious: Yes (Hospitalization)
  Sender: FDA-Public Use
  Company Number: JP-009507513-1207JPN001701

PATIENT

DRUGS (21)
  1. CANDESARTAN CILEXETIL [Concomitant]
     Dosage: 8 MG, QD
     Route: 048
     Dates: start: 20110101, end: 20120611
  2. ALBUMIN TANNATE [Concomitant]
     Dosage: 3 G, QD
     Route: 048
     Dates: start: 20110101, end: 20120611
  3. AMITRIPTYLINE HCL [Suspect]
     Indication: DEPRESSION
     Dosage: 20 MG, QD
     Route: 048
     Dates: start: 20120611, end: 20120621
  4. SINGULAIR TABLETS 5MG [Concomitant]
     Dosage: 10 MG, QD
     Route: 048
     Dates: start: 20120612
  5. LANSOPRAZOLE [Concomitant]
     Dosage: 15 MG, QD
     Route: 048
     Dates: start: 20110101, end: 20120611
  6. OXYCONTIN [Concomitant]
     Dosage: UNK
     Route: 048
     Dates: start: 20110101
  7. SPIRIVA [Concomitant]
     Dosage: 18 MICROGRAM, UNK
     Route: 048
     Dates: start: 20110101
  8. CELECOXIB [Concomitant]
     Dosage: 200 MG, QD
     Route: 048
     Dates: start: 20120607
  9. ALINAMIN F (FURSULTIAMINE HYDROCHLORIDE) [Concomitant]
     Dosage: 50 MG, QD
     Route: 048
     Dates: start: 20110101, end: 20120611
  10. LASIX [Concomitant]
     Dosage: 20 MG, UNK
     Route: 048
     Dates: start: 20120417
  11. MAGLAX (MAGNESIUM OXIDE) [Concomitant]
     Dosage: UNK
     Route: 048
     Dates: start: 20110101
  12. LANSOPRAZOLE [Concomitant]
     Dosage: 30 MG, UNK
     Route: 048
     Dates: start: 20120612
  13. SYMBICORT [Concomitant]
     Dosage: UNK
     Route: 055
     Dates: start: 20110101
  14. NOVAMIN (PROCHLORPERAZINE MESYLATE) [Concomitant]
     Dosage: 15 MG, QD
     Route: 048
     Dates: start: 20120605, end: 20120612
  15. EPARA [Concomitant]
     Dosage: 1200 MG, QD
     Route: 048
     Dates: start: 20110101, end: 20120612
  16. BETAMETHASONE [Concomitant]
     Dosage: 1.25 G, UNK
     Route: 048
     Dates: start: 20110101
  17. TAMSULOSIN HYDROCHLORIDE [Concomitant]
     Dosage: 0.2 MG, QD
     Dates: start: 20110101
  18. UNIPHYL [Concomitant]
     Dosage: 200 MG, QD
     Route: 048
     Dates: start: 20110101
  19. GABAPENTIN [Concomitant]
     Dosage: 1200 MG, QD
     Route: 048
     Dates: start: 20120529
  20. CEFAZOLIN SODIUM [Concomitant]
     Dosage: 18 MG, QD
     Route: 048
     Dates: start: 20110101, end: 20120611
  21. AMLODIPINE BESYLATE [Concomitant]
     Dosage: 2.5 MG, QD
     Route: 048
     Dates: start: 20110101, end: 20120611

REACTIONS (1)
  - DRUG ERUPTION [None]
